FAERS Safety Report 17351534 (Version 4)
Quarter: 2020Q3

REPORT INFORMATION
  Report Type: Report from Study
  Country: US (occurrence: US)
  Receive Date: 20200130
  Receipt Date: 20200722
  Transmission Date: 20201102
  Serious: No
  Sender: FDA-Public Use
  Company Number: NVSC2020US020199

PATIENT
  Sex: Male

DRUGS (2)
  1. BEOVU [Suspect]
     Active Substance: BROLUCIZUMAB-DBLL
     Route: 047
  2. BEOVU [Suspect]
     Active Substance: BROLUCIZUMAB-DBLL
     Indication: NEOVASCULAR AGE-RELATED MACULAR DEGENERATION
     Dosage: 1 DF (ONE SINGLE DOSE VIAL)
     Route: 050
     Dates: start: 20200122

REACTIONS (6)
  - Visual impairment [Recovering/Resolving]
  - Gait disturbance [Unknown]
  - Fatigue [Unknown]
  - Arthritis [Unknown]
  - Cough [Unknown]
  - Halo vision [Unknown]
